FAERS Safety Report 22294934 (Version 17)
Quarter: 2024Q4

REPORT INFORMATION
  Report Type: Report from Study
  Country: US (occurrence: US)
  Receive Date: 20230508
  Receipt Date: 20241217
  Transmission Date: 20250114
  Serious: Yes (Other)
  Sender: NOVARTIS
  Company Number: US-002147023-NVSC2023US101745

PATIENT
  Sex: Female

DRUGS (2)
  1. KESIMPTA [Suspect]
     Active Substance: OFATUMUMAB
     Indication: Relapsing multiple sclerosis
     Dosage: 20 MG, QW
     Route: 058
     Dates: start: 20230418
  2. KESIMPTA [Suspect]
     Active Substance: OFATUMUMAB
     Dosage: UNK, QMO
     Route: 065

REACTIONS (17)
  - Nephrolithiasis [Unknown]
  - Renal pain [Not Recovered/Not Resolved]
  - Multiple sclerosis relapse [Unknown]
  - Hypoaesthesia [Unknown]
  - Influenza like illness [Unknown]
  - Pain [Unknown]
  - Lethargy [Unknown]
  - Pain in extremity [Unknown]
  - Eye disorder [Unknown]
  - Eye pain [Unknown]
  - Incorrect dose administered by device [Unknown]
  - Injection site discharge [Unknown]
  - Accidental exposure to product [Unknown]
  - Needle issue [Unknown]
  - Device defective [Unknown]
  - Injection site haemorrhage [Unknown]
  - Night sweats [Unknown]
